FAERS Safety Report 5911873-5 (Version None)
Quarter: 2008Q4

REPORT INFORMATION
  Report Type: 
  Country: None (occurrence: None)
  Receive Date: 20081003
  Receipt Date: 20080925
  Transmission Date: 20090506
  Serious: Yes (Other)
  Sender: FDA-Public Use
  Company Number: 2008-03416

PATIENT
  Age: 60 Year
  Sex: Female

DRUGS (2)
  1. VELCADE [Suspect]
     Indication: MULTIPLE MYELOMA
     Dosage: 1.3 MG/M2
     Dates: start: 20080801, end: 20080901
  2. DEXAMETHASONE [Concomitant]

REACTIONS (4)
  - DISEASE PROGRESSION [None]
  - METASTASIS [None]
  - MULTIPLE MYELOMA [None]
  - PLASMACYTOMA [None]
